FAERS Safety Report 23305006 (Version 2)
Quarter: 2024Q1

REPORT INFORMATION
  Report Type: Spontaneous
  Country: FR (occurrence: FR)
  Receive Date: 20231218
  Receipt Date: 20240105
  Transmission Date: 20240410
  Serious: Yes (Hospitalization, Other)
  Sender: FDA-Public Use
  Company Number: FR-AFSSAPS-AN2023001527

PATIENT
  Age: 69 Year
  Sex: Male

DRUGS (9)
  1. REPAGLINIDE [Suspect]
     Active Substance: REPAGLINIDE
     Indication: Type 2 diabetes mellitus
     Dosage: 8 MILLIGRAM, ONCE A DAY
     Route: 048
  2. METFORMIN [Suspect]
     Active Substance: METFORMIN HYDROCHLORIDE
     Indication: Type 2 diabetes mellitus
     Dosage: 3 GRAM, ONCE A DAY
     Route: 048
  3. LERCANIDIPINE [Suspect]
     Active Substance: LERCANIDIPINE
     Indication: Hypertension
     Dosage: 20 MILLIGRAM, ONCE A DAY
     Route: 048
  4. VAXZEVRIA [Suspect]
     Active Substance: AZD-1222
     Indication: COVID-19 immunisation
     Dosage: 1 DOSAGE FORM, 2 TOTAL (D1+D2)
     Route: 030
     Dates: start: 20210326, end: 20210528
  5. CANDESARTAN CILEXETIL\HYDROCHLOROTHIAZIDE [Suspect]
     Active Substance: CANDESARTAN CILEXETIL\HYDROCHLOROTHIAZIDE
     Indication: Hypertension
     Dosage: 1 DOSAGE FORM, ONCE A DAY
     Route: 048
  6. KARDEGIC [Suspect]
     Active Substance: ASPIRIN DL-LYSINE
     Indication: Hypertension
     Dosage: 75 MILLIGRAM, ONCE A DAY ( IN SACHET-DOSE)
     Route: 048
  7. EZETIMIBE\SIMVASTATIN [Suspect]
     Active Substance: EZETIMIBE\SIMVASTATIN
     Indication: Dyslipidaemia
     Dosage: 1 DOSAGE FORM, ONCE A DAY
     Route: 048
  8. COMIRNATY (TOZINAMERAN) [Suspect]
     Active Substance: TOZINAMERAN
     Indication: COVID-19 immunisation
     Dosage: 1 DOSAGE FORM, 1 TOTAL(R1)
     Route: 030
     Dates: start: 20211216, end: 20211216
  9. INSULIN GLARGINE [Suspect]
     Active Substance: INSULIN GLARGINE
     Indication: Type 2 diabetes mellitus
     Dosage: 32 INTERNATIONAL UNIT, ONCE A DAY
     Route: 058
     Dates: start: 2020

REACTIONS (1)
  - Glomerulonephritis membranous [Not Recovered/Not Resolved]

NARRATIVE: CASE EVENT DATE: 20221020
